FAERS Safety Report 4309628-0 (Version None)
Quarter: 2004Q1

REPORT INFORMATION
  Report Type: 
  Country: None (occurrence: None)
  Receive Date: 20040302
  Receipt Date: 20040220
  Transmission Date: 20041129
  Serious: Yes (Other)
  Sender: FDA-Public Use
  Company Number: US-JNJFOC-20040204913

PATIENT
  Age: 85 Year
  Sex: Female
  Weight: 74.8435 kg

DRUGS (11)
  1. REMICADE [Suspect]
     Indication: RHEUMATOID ARTHRITIS
     Dosage: INTRAVENOUS
     Route: 042
     Dates: start: 20000417
  2. METHOTREXATE [Concomitant]
  3. FOLIC ACID [Concomitant]
  4. LEVOXYL (LEVOTHYROXINE SODIUIM) [Concomitant]
  5. NEXIUM [Concomitant]
  6. ACCOLATE [Concomitant]
  7. ASPIRIN [Concomitant]
  8. PROPOXYPHENE(DEXTROPOPOXYPHENE) [Concomitant]
  9. ACTONEL [Concomitant]
  10. PREDNISONE [Concomitant]
  11. CALCIUM (CALCIUM) [Concomitant]

REACTIONS (1)
  - SKIN CANCER [None]
